FAERS Safety Report 15474347 (Version 3)
Quarter: 2018Q4

REPORT INFORMATION
  Report Type: Report from Study
  Country: CA (occurrence: CA)
  Receive Date: 20181008
  Receipt Date: 20181123
  Transmission Date: 20190205
  Serious: Yes (Hospitalization)
  Sender: FDA-Public Use
  Company Number: CA-TAIHO ONCOLOGY  INC-EU-2018-01615

PATIENT
  Age: 54 Year
  Sex: Female
  Weight: 77.8 kg

DRUGS (9)
  1. LONSURF [Suspect]
     Active Substance: TIPIRACIL HYDROCHLORIDE\TRIFLURIDINE
     Indication: COLORECTAL CANCER METASTATIC
     Dosage: CYCLE 2 STARTED ON 02/AUG/2018. CYCLE 3 STARTED ON 07/SEP/2018. CYCLE 4 STARTED ON 18/OCT/2018
     Route: 048
     Dates: start: 20180705
  2. HYDROMORPHONE [Concomitant]
     Active Substance: HYDROMORPHONE
  3. CALCIUM [Concomitant]
     Active Substance: CALCIUM
  4. PREGABALIN. [Concomitant]
     Active Substance: PREGABALIN
     Route: 048
  5. METFORMIN [Concomitant]
     Active Substance: METFORMIN HYDROCHLORIDE
  6. ACIDOPHILUS PROBIOTIC [Concomitant]
     Dosage: NI
  7. CLINDAMYCIN. [Concomitant]
     Active Substance: CLINDAMYCIN
  8. IRON [Concomitant]
     Active Substance: IRON
     Route: 048
  9. METONIA [Concomitant]
     Active Substance: METOCLOPRAMIDE

REACTIONS (7)
  - Infection [Recovered/Resolved]
  - Urinary tract infection [Recovered/Resolved]
  - Stent placement [Unknown]
  - Dry mouth [Recovered/Resolved]
  - Pyrexia [Recovered/Resolved]
  - Kidney enlargement [Recovered/Resolved]
  - Alopecia [Not Recovered/Not Resolved]

NARRATIVE: CASE EVENT DATE: 201807
